FAERS Safety Report 17701494 (Version 3)
Quarter: 2021Q2

REPORT INFORMATION
  Report Type: Spontaneous
  Country: US (occurrence: US)
  Receive Date: 20200424
  Receipt Date: 20210416
  Transmission Date: 20210716
  Serious: Yes (Disabling, Other)
  Sender: FDA-Public Use
  Company Number: US-ASTRAZENECA-2020SE54202

PATIENT
  Age: 15954 Day
  Sex: Male
  Weight: 74.8 kg

DRUGS (81)
  1. FAMOTIDINE. [Concomitant]
     Active Substance: FAMOTIDINE
     Indication: GASTROOESOPHAGEAL REFLUX DISEASE
     Dosage: GENERIC
     Dates: start: 202008
  2. ONDANSETRON [Concomitant]
     Active Substance: ONDANSETRON
     Indication: NAUSEA
     Dates: start: 202007
  3. ROSUVASTATIN. [Concomitant]
     Active Substance: ROSUVASTATIN
     Indication: BLOOD CHOLESTEROL ABNORMAL
     Dates: start: 200912, end: 2018
  4. DIPHENHYDRAMINE. [Concomitant]
     Active Substance: DIPHENHYDRAMINE
     Route: 065
     Dates: start: 20200315
  5. CHLORHEXIDINE [Concomitant]
     Active Substance: CHLORHEXIDINE
  6. SEVELAMER [Concomitant]
     Active Substance: SEVELAMER
  7. SENNOSIDES. [Concomitant]
     Active Substance: SENNOSIDES
  8. COMPAZINE [Concomitant]
     Active Substance: PROCHLORPERAZINE MALEATE
  9. DIPRIVAN [Concomitant]
     Active Substance: PROPOFOL
  10. PRILOSEC OTC [Suspect]
     Active Substance: OMEPRAZOLE MAGNESIUM
     Route: 048
     Dates: start: 200103, end: 201412
  11. PREVACID 24 HR [Suspect]
     Active Substance: LANSOPRAZOLE
     Indication: DYSPEPSIA
     Route: 065
     Dates: start: 2007, end: 2008
  12. TRAZODONE [Concomitant]
     Active Substance: TRAZODONE HYDROCHLORIDE
     Indication: SLEEP DISORDER
     Dates: start: 201411
  13. ROLAIDS [Concomitant]
     Active Substance: CALCIUM CARBONATE\MAGNESIUM HYDROXIDE
     Dosage: AS NEEDED
     Dates: start: 2008, end: 2009
  14. DICYCLOMINE [Concomitant]
     Active Substance: DICYCLOMINE HYDROCHLORIDE
  15. VANCOMYCIN [Concomitant]
     Active Substance: VANCOMYCIN
  16. AMLODIPINE [Concomitant]
     Active Substance: AMLODIPINE BESYLATE
  17. LOPERAMIDE [Concomitant]
     Active Substance: LOPERAMIDE
  18. LABETALOL [Concomitant]
     Active Substance: LABETALOL\LABETALOL HYDROCHLORIDE
  19. OXYBUTYNIN. [Concomitant]
     Active Substance: OXYBUTYNIN CHLORIDE
  20. TAZOBACTAM [Concomitant]
     Active Substance: TAZOBACTAM
  21. HALDOL [Concomitant]
     Active Substance: HALOPERIDOL
  22. XARELTO [Concomitant]
     Active Substance: RIVAROXABAN
  23. OMEPRAZOLE. [Suspect]
     Active Substance: OMEPRAZOLE
     Indication: DYSPEPSIA
     Dosage: GENERIC
     Route: 065
     Dates: start: 2008, end: 2009
  24. OMEPRAZOLE. [Suspect]
     Active Substance: OMEPRAZOLE
     Indication: DYSPEPSIA
     Dosage: GENERIC
     Route: 048
     Dates: start: 20200107, end: 20210107
  25. SIMETHICONE (DIMETHICONE) [Concomitant]
     Active Substance: DIMETHICONE
     Indication: FLATULENCE
     Dates: start: 2008, end: 2009
  26. TACROLIMUS. [Concomitant]
     Active Substance: TACROLIMUS
     Indication: TRANSPLANT
     Dates: start: 201109
  27. DIGOXIN. [Concomitant]
     Active Substance: DIGOXIN
  28. NIFEDIPINE. [Concomitant]
     Active Substance: NIFEDIPINE
  29. SOLU?MEDROL [Concomitant]
     Active Substance: METHYLPREDNISOLONE SODIUM SUCCINATE
  30. SUBLIMAZE [Concomitant]
     Active Substance: FENTANYL CITRATE
  31. NEXIUM [Suspect]
     Active Substance: ESOMEPRAZOLE MAGNESIUM
     Indication: DYSPEPSIA
     Route: 048
     Dates: start: 2009
  32. FAMOTIDINE. [Concomitant]
     Active Substance: FAMOTIDINE
     Indication: GASTROOESOPHAGEAL REFLUX DISEASE
     Route: 065
     Dates: start: 202008
  33. METODOPRAMIDE [Concomitant]
     Indication: ABDOMINAL DISCOMFORT
     Dates: start: 2018
  34. METODOPRAMIDE [Concomitant]
     Indication: IMPAIRED GASTRIC EMPTYING
     Dates: start: 2018
  35. GABAPENTIN. [Concomitant]
     Active Substance: GABAPENTIN
     Indication: PAIN
     Dates: start: 201908
  36. TRAMADOL. [Concomitant]
     Active Substance: TRAMADOL
     Indication: PAIN
     Dates: start: 2009
  37. TUMS [Concomitant]
     Active Substance: CALCIUM CARBONATE
     Dosage: AS NEEDED
     Route: 065
     Dates: start: 2008, end: 2009
  38. ACETAMINOPHEN. [Concomitant]
     Active Substance: ACETAMINOPHEN
     Route: 065
     Dates: start: 20191119
  39. IBUPROFEN. [Concomitant]
     Active Substance: IBUPROFEN
     Route: 065
     Dates: start: 20071220, end: 20080119
  40. LIDODERM [Concomitant]
     Active Substance: LIDOCAINE
  41. EUCERIN [Concomitant]
     Active Substance: ENSULIZOLE\EUCERIN\OCTINOXATE\OCTISALATE\TITANIUM DIOXIDE\ZINC OXIDE
  42. ERYTHROMYCIN. [Concomitant]
     Active Substance: ERYTHROMYCIN
  43. CUBICIN [Concomitant]
     Active Substance: DAPTOMYCIN
  44. ENOXAPARIN [Concomitant]
     Active Substance: ENOXAPARIN
  45. METHYLPREDNISOLONE. [Concomitant]
     Active Substance: METHYLPREDNISOLONE
  46. NEXIUM 24HR [Suspect]
     Active Substance: ESOMEPRAZOLE MAGNESIUM
     Indication: DYSPEPSIA
     Dosage: ONCE DAILY
     Route: 048
     Dates: start: 2014, end: 2015
  47. OMEPRAZOLE. [Suspect]
     Active Substance: OMEPRAZOLE
     Indication: DYSPEPSIA
     Dosage: GENERIC
     Route: 048
     Dates: start: 20070608
  48. ROSUVASTATIN. [Concomitant]
     Active Substance: ROSUVASTATIN
     Indication: BLOOD CHOLESTEROL ABNORMAL
     Dates: start: 200912
  49. CARVEDILOL. [Concomitant]
     Active Substance: CARVEDILOL
  50. ASPIRIN. [Concomitant]
     Active Substance: ASPIRIN
  51. FLUCONAZOLE. [Concomitant]
     Active Substance: FLUCONAZOLE
  52. MECLIZINE [Concomitant]
     Active Substance: MECLIZINE HYDROCHLORIDE
  53. PROTHROMBIN [Concomitant]
     Active Substance: PROTHROMBIN
  54. CENTRUM [Concomitant]
     Active Substance: VITAMINS
  55. AZITHROMYCIN ANHYDROUS. [Concomitant]
     Active Substance: AZITHROMYCIN ANHYDROUS
     Indication: ABDOMINAL DISCOMFORT
     Dates: start: 202007
  56. LISINOPRIL. [Concomitant]
     Active Substance: LISINOPRIL
     Indication: BLOOD PRESSURE ABNORMAL
     Dates: start: 200608
  57. CLINDAMYCIN. [Concomitant]
     Active Substance: CLINDAMYCIN
  58. FUROSEMIDE. [Concomitant]
     Active Substance: FUROSEMIDE
  59. SULFAMETHOXAZOLE [Concomitant]
     Active Substance: SULFAMETHOXAZOLE
  60. DOXAZOSIN [Concomitant]
     Active Substance: DOXAZOSIN MESYLATE
  61. DESONIDE. [Concomitant]
     Active Substance: DESONIDE
  62. NEXIUM [Suspect]
     Active Substance: ESOMEPRAZOLE MAGNESIUM
     Indication: DYSPEPSIA
     Route: 048
     Dates: start: 200103, end: 201412
  63. MYCOPHENOLATE [Concomitant]
     Active Substance: MYCOPHENOLIC ACID
     Indication: TRANSPLANT REJECTION
     Dates: start: 201109
  64. CYCLOBENZAPRINE. [Concomitant]
     Active Substance: CYCLOBENZAPRINE
     Indication: HYPOTONIA
     Dates: start: 201912
  65. ROSUVASTATIN. [Concomitant]
     Active Substance: ROSUVASTATIN
     Indication: ANTIDEPRESSANT THERAPY
     Dates: start: 200912
  66. AMITRIPTYLINE [Concomitant]
     Active Substance: AMITRIPTYLINE
     Route: 065
     Dates: start: 20170213
  67. MIRTAZAPINE. [Concomitant]
     Active Substance: MIRTAZAPINE
  68. HYDROMORPHONE [Concomitant]
     Active Substance: HYDROMORPHONE
  69. PIPERACILLIN. [Concomitant]
     Active Substance: PIPERACILLIN SODIUM
  70. HYDRALAZINE [Concomitant]
     Active Substance: HYDRALAZINE HYDROCHLORIDE
  71. BISACODYL. [Concomitant]
     Active Substance: BISACODYL
  72. PANTOPRAZOLE [Suspect]
     Active Substance: PANTOPRAZOLE
     Indication: DYSPEPSIA
     Dosage: GENERIC
     Route: 065
     Dates: start: 2007, end: 2015
  73. SUCRALFATE. [Concomitant]
     Active Substance: SUCRALFATE
     Indication: ABDOMINAL DISCOMFORT
     Dates: start: 202005
  74. ROSUVASTATIN. [Concomitant]
     Active Substance: ROSUVASTATIN
     Indication: ANTIDEPRESSANT THERAPY
     Dates: start: 200912, end: 2018
  75. PREDNISONE. [Concomitant]
     Active Substance: PREDNISONE
  76. DOCUSATE [Concomitant]
     Active Substance: DOCUSATE
  77. CALCIUM [Concomitant]
     Active Substance: CALCIUM
  78. VALGANCICLOVIR. [Concomitant]
     Active Substance: VALGANCICLOVIR
  79. METRONIDAZOLE. [Concomitant]
     Active Substance: METRONIDAZOLE
  80. BACTRIM [Concomitant]
     Active Substance: SULFAMETHOXAZOLE\TRIMETHOPRIM
  81. ZOVIRAX [Concomitant]
     Active Substance: ACYCLOVIR

REACTIONS (5)
  - Acute kidney injury [Not Recovered/Not Resolved]
  - Renal failure [Unknown]
  - Chronic kidney disease [Not Recovered/Not Resolved]
  - Chronic kidney disease-mineral and bone disorder [Unknown]
  - End stage renal disease [Not Recovered/Not Resolved]

NARRATIVE: CASE EVENT DATE: 20101019
